FAERS Safety Report 5327690-3 (Version None)
Quarter: 2007Q2

REPORT INFORMATION
  Report Type: 
  Country: None (occurrence: None)
  Receive Date: 20070517
  Receipt Date: 20070508
  Transmission Date: 20071010
  Serious: Yes (Life-Threatening, Other)
  Sender: FDA-Public Use
  Company Number: US-MERCK-0703USA04235

PATIENT
  Age: 44 Year
  Sex: Male
  Weight: 77 kg

DRUGS (5)
  1. VYTORIN [Suspect]
     Indication: HYPERCHOLESTEROLAEMIA
     Route: 048
     Dates: start: 20060628
  2. VYTORIN [Suspect]
     Route: 048
  3. DILANTIN [Concomitant]
     Route: 065
  4. LAMICTAL [Concomitant]
     Route: 065
  5. LAMICTAL [Concomitant]
     Route: 065

REACTIONS (3)
  - CONVULSION [None]
  - DRUG LEVEL DECREASED [None]
  - ROAD TRAFFIC ACCIDENT [None]
